FAERS Safety Report 5341823-4 (Version None)
Quarter: 2007Q2

REPORT INFORMATION
  Report Type: 
  Country: None (occurrence: None)
  Receive Date: 20070529
  Receipt Date: 20070529
  Transmission Date: 20071010
  Serious: Yes (Hospitalization)
  Sender: FDA-Public Use
  Company Number: None

PATIENT
  Age: 29 Year
  Sex: Male
  Weight: 113.3993 kg

DRUGS (1)
  1. BENAZEPRIL HYDROCHLORIDE [Suspect]
     Indication: BLOOD PRESSURE
     Dosage: 20 MG 1 TIME PER DAY CUTANEOUS
     Route: 003
     Dates: start: 20070515, end: 20070524

REACTIONS (1)
  - ARTHRITIS [None]
